FAERS Safety Report 6188316-2 (Version None)
Quarter: 2009Q2

REPORT INFORMATION
  Report Type: 
  Country: None (occurrence: None)
  Receive Date: 20090513
  Receipt Date: 20090502
  Transmission Date: 20091009
  Serious: Yes (Hospitalization)
  Sender: FDA-Public Use
  Company Number: US-PFIZER INC-2005089378

PATIENT
  Sex: Female
  Weight: 62 kg

DRUGS (10)
  1. SUNITINIB MALATE [Suspect]
     Indication: GASTROINTESTINAL STROMAL TUMOUR
     Dosage: 50 MG, 1X/DAY, DAY 1-28 OF 42 DAY CYCLE
     Route: 048
     Dates: start: 20050527
  2. METOPROLOL [Concomitant]
     Indication: HYPERTENSION
     Route: 048
     Dates: start: 20050512
  3. NORVASC [Concomitant]
     Indication: HYPERTENSION
     Route: 048
     Dates: start: 20050512
  4. ADVAIR HFA [Concomitant]
     Indication: CHRONIC OBSTRUCTIVE PULMONARY DISEASE
     Route: 048
     Dates: start: 20050512
  5. CALCIUM [Concomitant]
     Route: 048
     Dates: start: 20050512
  6. GLUCOSAMINE [Concomitant]
     Route: 048
     Dates: start: 20050512
  7. LISINOPRIL [Concomitant]
     Indication: HYPERTENSION
     Route: 048
     Dates: start: 20050527
  8. SENNA [Concomitant]
     Route: 048
     Dates: start: 20050614
  9. DARVOCET [Concomitant]
     Route: 048
     Dates: start: 20050614
  10. TUMS [Concomitant]
     Indication: GASTROOESOPHAGEAL REFLUX DISEASE
     Route: 048
     Dates: start: 20050604

REACTIONS (4)
  - EAR INFECTION [None]
  - RENAL FAILURE [None]
  - THROMBOCYTOPENIA [None]
  - UROSEPSIS [None]
